FAERS Safety Report 15959681 (Version 2)
Quarter: 2019Q1

REPORT INFORMATION
  Report Type: Spontaneous
  Country: GB (occurrence: GB)
  Receive Date: 20190214
  Receipt Date: 20190325
  Transmission Date: 20190417
  Serious: Yes (Death, Other)
  Sender: FDA-Public Use
  Company Number: GB-AUROBINDO-AUR-APL-2011-03605

PATIENT

DRUGS (12)
  1. ZISPIN [Suspect]
     Active Substance: MIRTAZAPINE
     Indication: DEPRESSION
     Dosage: 45 MG,UNK,
     Route: 048
  2. ZISPIN [Suspect]
     Active Substance: MIRTAZAPINE
     Dosage: 15 MG, INCREASE IN DOSE IN 7 WEEKS
     Route: 048
  3. CITALOPRAM FILM-COATED TABLETS 20MG [Suspect]
     Active Substance: CITALOPRAM HYDROBROMIDE
     Dosage: 20 MG, UNK
     Route: 065
  4. ZISPIN [Suspect]
     Active Substance: MIRTAZAPINE
     Dosage: 30 MG,UNK,
     Route: 048
  5. PRIADEL [Concomitant]
     Active Substance: LITHIUM
     Indication: PRODUCT USED FOR UNKNOWN INDICATION
     Dosage: 600 MG, UNK
     Route: 065
  6. LEVOTHYROXINE. [Concomitant]
     Active Substance: LEVOTHYROXINE
     Indication: PRODUCT USED FOR UNKNOWN INDICATION
     Dosage: 25 MICROGRAM
     Route: 065
     Dates: start: 20060120
  7. ZISPIN [Suspect]
     Active Substance: MIRTAZAPINE
     Dosage: 15 MG,UNK,
     Route: 048
     Dates: start: 20070527
  8. PRIADEL [Concomitant]
     Active Substance: LITHIUM
     Dosage: UNK, INTAKE OF 30 YEARS
     Route: 065
  9. ATORVASTATIN [Concomitant]
     Active Substance: ATORVASTATIN
     Indication: PRODUCT USED FOR UNKNOWN INDICATION
     Dosage: 20 MG, UNK
     Route: 065
     Dates: start: 20041115
  10. ASPIRIN. [Concomitant]
     Active Substance: ASPIRIN
     Indication: PRODUCT USED FOR UNKNOWN INDICATION
     Dosage: UNK UNK,UNK,
     Route: 065
  11. ACETYLSALICYLIC ACID [Suspect]
     Active Substance: ASPIRIN
     Indication: PRODUCT USED FOR UNKNOWN INDICATION
     Dosage: UNK
     Route: 065
  12. CITALOPRAM FILM-COATED TABLETS 20MG [Suspect]
     Active Substance: CITALOPRAM HYDROBROMIDE
     Indication: PRODUCT USED FOR UNKNOWN INDICATION
     Dosage: 20 MG, UNK
     Route: 065
     Dates: start: 200704

REACTIONS (7)
  - Overdose [Unknown]
  - Histrionic personality disorder [Unknown]
  - Condition aggravated [Unknown]
  - Completed suicide [Fatal]
  - Agitation [Unknown]
  - Anxiety [Unknown]
  - Confusional state [Unknown]
